FAERS Safety Report 18206026 (Version 2)
Quarter: 2020Q4

REPORT INFORMATION
  Report Type: Spontaneous
  Country: NL (occurrence: NL)
  Receive Date: 20200827
  Receipt Date: 20201206
  Transmission Date: 20210113
  Serious: Yes (Hospitalization, Other)
  Sender: FDA-Public Use
  Company Number: NL-SA-2020SA225927

PATIENT

DRUGS (10)
  1. TEMAZEPAM. [Suspect]
     Active Substance: TEMAZEPAM
     Dosage: UNK
     Dates: start: 201805
  2. AMITRIPTYLINE HYDROCHLORIDE. [Concomitant]
     Active Substance: AMITRIPTYLINE HYDROCHLORIDE
     Dosage: 5 MG, QD
     Route: 048
     Dates: start: 201805
  3. ZOLPIDEM TARTRATE. [Suspect]
     Active Substance: ZOLPIDEM TARTRATE
     Dosage: UNK
     Dates: start: 201805
  4. DIAZEPAM. [Suspect]
     Active Substance: DIAZEPAM
     Dosage: UNK
     Dates: start: 201805
  5. PREGABALIN. [Concomitant]
     Active Substance: PREGABALIN
     Dosage: UNK
     Dates: start: 201805
  6. OXAZEPAM. [Concomitant]
     Active Substance: OXAZEPAM
     Dosage: UNK
  7. DOGMATIL [Suspect]
     Active Substance: SULPIRIDE
     Indication: VERTIGO
     Dosage: UNK
     Route: 048
     Dates: start: 20170124
  8. PREGABALIN. [Concomitant]
     Active Substance: PREGABALIN
     Dosage: 75 MG, QD
     Route: 048
     Dates: start: 20180301
  9. OXYCODON [Concomitant]
     Active Substance: OXYCODONE
     Dosage: 5 MG, QD (ZN6)
     Route: 048
     Dates: start: 20180305
  10. DOGMATIL [Suspect]
     Active Substance: SULPIRIDE
     Dosage: UNK
     Dates: start: 201805

REACTIONS (5)
  - Loss of consciousness [Unknown]
  - Respiratory depression [Unknown]
  - Toxicity to various agents [Unknown]
  - Suicide attempt [Unknown]
  - Intentional product misuse [Unknown]

NARRATIVE: CASE EVENT DATE: 201805
